FAERS Safety Report 19064620 (Version 4)
Quarter: 2021Q3

REPORT INFORMATION
  Report Type: Report from Study
  Country: IL (occurrence: IL)
  Receive Date: 20210326
  Receipt Date: 20210924
  Transmission Date: 20211014
  Serious: Yes (Other)
  Sender: FDA-Public Use
  Company Number: IL-CELGENEUS-ISR-20210304819

PATIENT
  Age: 49 Year
  Sex: Male
  Weight: 61 kg

DRUGS (12)
  1. ACETYLSALICYLIC ACID [Concomitant]
     Active Substance: ASPIRIN
     Indication: THROMBOSIS PROPHYLAXIS
     Dosage: 100 MILLIGRAM
     Route: 048
  2. VITAMIN D [Concomitant]
     Active Substance: VITAMIN D NOS
     Indication: PROPHYLAXIS
     Route: 048
     Dates: start: 20170630
  3. WHOLE BLOOD [Concomitant]
     Active Substance: WHOLE BLOOD
     Indication: THALASSAEMIA BETA
     Dosage: 26 UNITS
     Route: 041
     Dates: start: 20200130, end: 20210103
  4. LUSPATERCEPT. [Suspect]
     Active Substance: LUSPATERCEPT
     Dosage: 1 MILLIGRAM/KILOGRAM
     Route: 058
     Dates: start: 20200108, end: 20210103
  5. EXJADE [Concomitant]
     Active Substance: DEFERASIROX
     Dosage: 1500 MILLIGRAM
     Route: 065
     Dates: start: 20160925, end: 20170729
  6. CALCIUM CARBONATE AND VITAMIN D [Concomitant]
     Active Substance: CALCIUM CARBONATE\VITAMIN D
     Indication: PROPHYLAXIS
     Dosage: 600 + 200/ MG/IU
     Route: 048
     Dates: start: 20171116
  7. HYDROCORTISONE ACETATE. [Concomitant]
     Active Substance: HYDROCORTISONE ACETATE
     Indication: PREMEDICATION
     Route: 030
     Dates: start: 20170730
  8. LORATADINE. [Concomitant]
     Active Substance: LORATADINE
     Indication: PREMEDICATION
     Route: 048
     Dates: start: 20170730
  9. LUSPATERCEPT. [Suspect]
     Active Substance: LUSPATERCEPT
     Indication: THALASSAEMIA BETA
     Dosage: 1 MILLIGRAM/KILOGRAM
     Route: 058
     Dates: start: 20161120, end: 20191218
  10. EXJADE [Concomitant]
     Active Substance: DEFERASIROX
     Dosage: 1000 MILLIGRAM
     Route: 065
     Dates: start: 20170730
  11. EXJADE [Concomitant]
     Active Substance: DEFERASIROX
     Indication: CHELATION THERAPY
     Dosage: 1000 MILLIGRAM
     Route: 065
     Dates: start: 20141012, end: 20160924
  12. ASCORBIC ACID. [Concomitant]
     Active Substance: ASCORBIC ACID
     Indication: NUTRITIONAL SUPPLEMENTATION
     Dosage: 100 MILLIGRAM
     Route: 048
     Dates: start: 2006

REACTIONS (1)
  - Extramedullary haemopoiesis [Not Recovered/Not Resolved]

NARRATIVE: CASE EVENT DATE: 20210209
